FAERS Safety Report 5703771-7 (Version None)
Quarter: 2008Q2

REPORT INFORMATION
  Report Type: 
  Country: None (occurrence: None)
  Receive Date: 20080413
  Receipt Date: 20080413
  Transmission Date: 20081010
  Serious: Yes (Hospitalization)
  Sender: FDA-Public Use
  Company Number: TH-ABBOTT-08P-155-0437777-00

PATIENT
  Age: 53 Year
  Sex: Female

DRUGS (5)
  1. REDUCTIL [Suspect]
     Indication: WEIGHT CONTROL
     Route: 048
     Dates: start: 20070104, end: 20070801
  2. MODURETIC 5-50 [Concomitant]
     Indication: HYPERTENSION
     Route: 048
     Dates: start: 20061101, end: 20070301
  3. MODURETIC 5-50 [Concomitant]
     Indication: PROPHYLAXIS
  4. ENALAPRIL MALEATE [Concomitant]
     Indication: HYPERTENSION
     Route: 048
     Dates: start: 20070301
  5. ENALAPRIL MALEATE [Concomitant]
     Indication: PROPHYLAXIS

REACTIONS (1)
  - IDIOPATHIC THROMBOCYTOPENIC PURPURA [None]
